FAERS Safety Report 4775845-9 (Version None)
Quarter: 2005Q3

REPORT INFORMATION
  Report Type: 
  Country: None (occurrence: None)
  Receive Date: 20050922
  Receipt Date: 20041217
  Transmission Date: 20060218
  Serious: Yes (Disabling, Other)
  Sender: FDA-Public Use
  Company Number: US-MERCK-0412USA02248

PATIENT
  Age: 68 Year
  Sex: Female

DRUGS (1)
  1. VIOXX [Suspect]
     Route: 048

REACTIONS (11)
  - ADVERSE EVENT [None]
  - BREATH SOUNDS ABNORMAL [None]
  - CEREBROVASCULAR ACCIDENT [None]
  - DIZZINESS POSTURAL [None]
  - DYSPNOEA EXERTIONAL [None]
  - HYPERGLYCAEMIA [None]
  - JOINT RANGE OF MOTION DECREASED [None]
  - MUSCULAR WEAKNESS [None]
  - POLYTRAUMATISM [None]
  - VISION BLURRED [None]
  - VISUAL ACUITY REDUCED [None]
